FAERS Safety Report 4989972-4 (Version None)
Quarter: 2006Q2

REPORT INFORMATION
  Report Type: 
  Country: None (occurrence: None)
  Receive Date: 20060503
  Receipt Date: 20060426
  Transmission Date: 20061013
  Serious: Yes (Other)
  Sender: FDA-Public Use
  Company Number: GB-JNJFOC-20060405682

PATIENT
  Age: 39 Year
  Sex: Female

DRUGS (4)
  1. DURAGESIC-100 [Suspect]
     Indication: PAIN
     Route: 048
  2. TRANSTEC [Concomitant]
     Indication: PAIN
     Route: 062
  3. ESCITALOPRAM OXALATE [Concomitant]
     Route: 065
  4. RISPERIDONE [Concomitant]
     Route: 065

REACTIONS (3)
  - HALLUCINATION [None]
  - PARAESTHESIA [None]
  - SWELLING [None]
